FAERS Safety Report 7300793-X (Version None)
Quarter: 2011Q1

REPORT INFORMATION
  Report Type: 
  Country: None (occurrence: None)
  Receive Date: 20110218
  Receipt Date: 20110211
  Transmission Date: 20110831
  Serious: Yes (Hospitalization)
  Sender: FDA-Public Use
  Company Number: GB-ASTELLAS-2011EU000659

PATIENT
  Sex: Male

DRUGS (1)
  1. VESICARE [Suspect]
     Indication: BLADDER SPASM
     Dosage: 5 MG, UNKNOWN/D
     Route: 048
     Dates: start: 20110127, end: 20110129

REACTIONS (1)
  - ANAPHYLACTIC REACTION [None]
